FAERS Safety Report 10010686 (Version 3)
Quarter: 2014Q2

REPORT INFORMATION
  Report Type: Spontaneous
  Country: CA (occurrence: CA)
  Receive Date: 20140314
  Receipt Date: 20140404
  Transmission Date: 20141212
  Serious: Yes (Other)
  Sender: FDA-Public Use
  Company Number: CA-009507513-1403CAN004193

PATIENT
  Sex: Male

DRUGS (6)
  1. VICTRELIS [Suspect]
     Indication: HEPATITIS C
     Dosage: UNK
     Route: 048
  2. RIBAVIRIN [Suspect]
     Indication: HEPATITIS C
     Dosage: UNK
     Route: 048
  3. RIBAVIRIN [Suspect]
     Dosage: UNK
     Route: 048
  4. PEGASYS [Suspect]
     Indication: HEPATITIS C
     Dosage: UNK
     Route: 058
  5. PEGASYS [Suspect]
     Dosage: UNK
     Route: 058
  6. INTERFERON ALFA-2A [Suspect]
     Indication: CHRONIC HEPATITIS C

REACTIONS (9)
  - Osteoarthritis [Unknown]
  - Cognitive disorder [Unknown]
  - Depression [Unknown]
  - Haemoglobin decreased [Unknown]
  - Fibromyalgia [Unknown]
  - Feeling cold [Unknown]
  - Weight decreased [Unknown]
  - Muscle atrophy [Unknown]
  - No therapeutic response [Unknown]
